FAERS Safety Report 5714186-X (Version None)
Quarter: 2008Q2

REPORT INFORMATION
  Report Type: 
  Country: None (occurrence: None)
  Receive Date: 20080423
  Receipt Date: 20070705
  Transmission Date: 20081010
  Serious: No
  Sender: FDA-Public Use
  Company Number: US-KINGPHARMUSA00001-K200700855

PATIENT

DRUGS (3)
  1. SKELAXIN [Suspect]
     Indication: PAIN
     Dosage: 800 MG, Q8 HR
     Route: 048
     Dates: start: 20070629, end: 20070702
  2. FLUOXETINE [Concomitant]
     Dosage: 60 MG, QD
     Route: 048
  3. VICODIN [Concomitant]
     Indication: PAIN
     Route: 048
     Dates: start: 20070628

REACTIONS (4)
  - HYPERSENSITIVITY [None]
  - PRURITUS [None]
  - SKIN DISCOLOURATION [None]
  - URTICARIA [None]
